FAERS Safety Report 9031864 (Version 2)
Quarter: 2013Q4

REPORT INFORMATION
  Report Type: Spontaneous
  Country: US (occurrence: US)
  Receive Date: 20130124
  Receipt Date: 20131021
  Transmission Date: 20140711
  Serious: Yes (Hospitalization, Other)
  Sender: FDA-Public Use
  Company Number: US-TARO-2013P1000697

PATIENT
  Age: 70 Year
  Sex: Male
  Weight: 83.92 kg

DRUGS (1)
  1. PLACEBO [Suspect]
     Indication: ACTINIC KERATOSIS
     Route: 061
     Dates: start: 20121109, end: 20130108

REACTIONS (1)
  - Acute myocardial infarction [Recovered/Resolved]
